FAERS Safety Report 6704058-6 (Version None)
Quarter: 2010Q2

REPORT INFORMATION
  Report Type: 
  Country: None (occurrence: None)
  Receive Date: 20100430
  Receipt Date: 20100428
  Transmission Date: 20101027
  Serious: Yes (Life-Threatening, Hospitalization, Other)
  Sender: FDA-Public Use
  Company Number: GB-BAYER-200929302GPV

PATIENT
  Age: 75 Year
  Sex: Female
  Weight: 89 kg

DRUGS (1)
  1. MAGNEVIST [Suspect]
     Indication: ANGIOGRAM
     Dosage: AS USED: 30 ML
     Route: 042
     Dates: start: 20090818, end: 20090818

REACTIONS (3)
  - ACUTE PULMONARY OEDEMA [None]
  - DYSPNOEA [None]
  - RESPIRATORY TRACT CONGESTION [None]
